FAERS Safety Report 19242820 (Version 1)
Quarter: 2021Q2

REPORT INFORMATION
  Report Type: Spontaneous
  Country: US (occurrence: US)
  Receive Date: 20210510
  Receipt Date: 20210510
  Transmission Date: 20210717
  Serious: No
  Sender: FDA-Public Use
  Company Number: US-LUPIN PHARMACEUTICALS INC.-2021-06397

PATIENT
  Sex: Male

DRUGS (1)
  1. CLONIDINE. [Suspect]
     Active Substance: CLONIDINE
     Indication: POST-TRAUMATIC STRESS DISORDER
     Dosage: LOW DOSE
     Route: 065

REACTIONS (2)
  - Orthostatic hypotension [Unknown]
  - Off label use [Unknown]
